FAERS Safety Report 24632965 (Version 1)
Quarter: 2024Q4

REPORT INFORMATION
  Report Type: Report from Study
  Country: US (occurrence: US)
  Receive Date: 20241118
  Receipt Date: 20241118
  Transmission Date: 20250114
  Serious: Yes (Other)
  Sender: ALEXION PHARMACEUTICALS
  Company Number: US-AstraZeneca-CH-00656794A

PATIENT

DRUGS (1)
  1. ULTOMIRIS [Interacting]
     Active Substance: RAVULIZUMAB-CWVZ
     Indication: Myasthenia gravis
     Dosage: UNK

REACTIONS (10)
  - Atrial fibrillation [Unknown]
  - Diabetes mellitus [Unknown]
  - Cardiac disorder [Unknown]
  - Hypotension [Unknown]
  - Blood magnesium decreased [Unknown]
  - Oxygen saturation decreased [Unknown]
  - Dyspnoea [Unknown]
  - Presyncope [Unknown]
  - Gait disturbance [Unknown]
  - Drug interaction [Unknown]
